FAERS Safety Report 23442214 (Version 1)
Quarter: 2024Q1

REPORT INFORMATION
  Report Type: Spontaneous
  Country: US (occurrence: None)
  Receive Date: 20240124
  Receipt Date: 20240124
  Transmission Date: 20240409
  Serious: No
  Sender: FDA-Public Use
  Company Number: None

PATIENT
  Age: 73 Year
  Sex: Female

DRUGS (1)
  1. ADEMPAS [Suspect]
     Active Substance: RIOCIGUAT
     Indication: Pulmonary hypertension
     Dosage: 1MG TID ORAL?
     Route: 048
     Dates: start: 20230810

REACTIONS (3)
  - Dizziness [None]
  - Blood pressure decreased [None]
  - Therapy change [None]

NARRATIVE: CASE EVENT DATE: 20240122
